FAERS Safety Report 23733694 (Version 1)
Quarter: 2024Q2

REPORT INFORMATION
  Report Type: Spontaneous
  Country: DE (occurrence: DE)
  Receive Date: 20240411
  Receipt Date: 20240411
  Transmission Date: 20240716
  Serious: Yes (Other)
  Sender: FDA-Public Use
  Company Number: DE-ROCHE-3532084

PATIENT
  Age: 51 Year
  Sex: Female
  Weight: 60 kg

DRUGS (4)
  1. OXALIPLATIN [Suspect]
     Active Substance: OXALIPLATIN
     Indication: Neoplasm malignant
     Dosage: 109.01 MILLIGRAM,BIWEEKLY (DATE OF MOST RECENT DOSE OF PRIOR TO AE/SAE ONSET 29/DEC/2023)
     Route: 042
     Dates: start: 20231102
  2. IRINOTECAN [Suspect]
     Active Substance: IRINOTECAN
     Indication: Neoplasm malignant
     Dosage: 184.68 MILLIGRAM,BIWEEKLY (DATE OF MOST RECENT DOSE OF  PRIOR TO AE/SAE ONSET 29/DEC/2023)
     Route: 042
     Dates: start: 20231102
  3. LEUCOVORIN CALCIUM [Suspect]
     Active Substance: LEUCOVORIN CALCIUM
     Indication: Neoplasm malignant
     Dosage: 684 MILLIGRAM,BIWEEKLY (DATE OF MOST RECENT DOSE OF  PRIOR TO AE/SAE ONSET 29/DEC/2023)
     Route: 042
     Dates: start: 20231102
  4. FLUOROURACIL [Suspect]
     Active Substance: FLUOROURACIL
     Indication: Neoplasm malignant
     Dosage: 2462.4 MILLIGRAM, BIWEEKLY (DATE OF MOST RECENT DOSE OF PRIOR TO AE/SAE ONSET 29/DEC/2023)
     Route: 042
     Dates: start: 20231102

REACTIONS (1)
  - Polyneuropathy [Not Recovered/Not Resolved]

NARRATIVE: CASE EVENT DATE: 20240112
